FAERS Safety Report 12178366 (Version 1)
Quarter: 2016Q1

REPORT INFORMATION
  Report Type: Spontaneous
  Country: US (occurrence: None)
  Receive Date: 20160314
  Receipt Date: 20160314
  Transmission Date: 20160526
  Serious: Yes (Hospitalization)
  Sender: FDA-Public Use
  Company Number: None

PATIENT
  Age: 40 Year
  Sex: Male

DRUGS (2)
  1. CENTRUM DAILY VITAMINS [Concomitant]
  2. ZITHROMAX [Suspect]
     Active Substance: AZITHROMYCIN DIHYDRATE
     Indication: OROPHARYNGEAL PAIN
     Dosage: 2 PILLS FIRST DAY/ 1 PILL AFTER  ONCE DAILY  TAKEN BY MOUTH
     Route: 048
     Dates: start: 20160206, end: 20160211

REACTIONS (12)
  - Pruritus [None]
  - Pyrexia [None]
  - Cough [None]
  - Decreased appetite [None]
  - Yellow skin [None]
  - Chest discomfort [None]
  - Heart rate increased [None]
  - Heart rate irregular [None]
  - Speech disorder [None]
  - Wheezing [None]
  - Urticaria [None]
  - Initial insomnia [None]

NARRATIVE: CASE EVENT DATE: 20160206
